FAERS Safety Report 10099385 (Version 2)
Quarter: 2014Q2

REPORT INFORMATION
  Report Type: Spontaneous
  Country: US (occurrence: US)
  Receive Date: 20140423
  Receipt Date: 20140515
  Transmission Date: 20141212
  Serious: No
  Sender: FDA-Public Use
  Company Number: US-009507513-1404USA011222

PATIENT
  Age: 57 Year
  Sex: Female
  Weight: 68.27 kg

DRUGS (2)
  1. OXYTROL FOR WOMEN [Suspect]
     Indication: POLLAKIURIA
     Dosage: 1 DF, ONCE
     Route: 062
     Dates: start: 20140307, end: 20140310
  2. SYNTHROID [Concomitant]
     Indication: HYPOTHYROIDISM
     Dosage: UNK, UNKNOWN

REACTIONS (3)
  - Pruritus [Unknown]
  - Drug effect decreased [Unknown]
  - Product adhesion issue [Unknown]
